FAERS Safety Report 6382639-X (Version None)
Quarter: 2009Q3

REPORT INFORMATION
  Report Type: 
  Country: None (occurrence: None)
  Receive Date: 20090930
  Receipt Date: 20090924
  Transmission Date: 20100115
  Serious: No
  Sender: FDA-Public Use
  Company Number: US-JNJFOC-20090908182

PATIENT
  Sex: Female
  Weight: 72.58 kg

DRUGS (11)
  1. DURAGESIC-100 [Suspect]
     Indication: SYSTEMIC LUPUS ERYTHEMATOSUS
     Route: 062
  2. ELAVIL [Concomitant]
     Indication: FIBROMYALGIA
     Route: 048
  3. PREDNISONE [Concomitant]
     Indication: SYSTEMIC LUPUS ERYTHEMATOSUS
     Route: 048
  4. PHENERGAN [Concomitant]
     Indication: GASTRIC DISORDER
     Route: 048
  5. PEPCID [Concomitant]
     Indication: GASTRIC DISORDER
     Route: 048
  6. FLEXERIL [Concomitant]
     Indication: FIBROMYALGIA
     Route: 048
  7. REQUIP [Concomitant]
     Indication: RESTLESS LEGS SYNDROME
     Route: 048
  8. LYRICA [Concomitant]
     Indication: FIBROMYALGIA
     Route: 048
  9. PAROXETINE [Concomitant]
     Indication: ANTIDEPRESSANT THERAPY
     Route: 048
  10. NABUMETONE [Concomitant]
     Indication: ARTHROPATHY
     Route: 048
  11. CYMBALTA [Concomitant]
     Indication: FIBROMYALGIA
     Route: 048

REACTIONS (3)
  - DRUG DOSE OMISSION [None]
  - DRUG INEFFECTIVE [None]
  - PRODUCT QUALITY ISSUE [None]
